FAERS Safety Report 8811958 (Version 1)
Quarter: 2012Q4

REPORT INFORMATION
  Report Type: 
  Country: FI (occurrence: US)
  Receive Date: 20120927
  Receipt Date: 20120927
  Transmission Date: 20130627
  Serious: No
  Sender: FDA-Public Use
  Company Number: US-009507513-1209USA010888

PATIENT
  Sex: Male

DRUGS (1)
  1. FARESTON [Suspect]
     Indication: BREAST CANCER
     Dosage: 60 mg qd
     Route: 048
     Dates: start: 20120301

REACTIONS (5)
  - Muscle spasms [Not Recovered/Not Resolved]
  - Insomnia [Unknown]
  - Weight increased [Unknown]
  - Flushing [Unknown]
  - Mood swings [Unknown]
